FAERS Safety Report 5704146-7 (Version None)
Quarter: 2008Q2

REPORT INFORMATION
  Report Type: 
  Country: None (occurrence: None)
  Receive Date: 20080409
  Receipt Date: 20080331
  Transmission Date: 20081010
  Serious: Yes (Other)
  Sender: FDA-Public Use
  Company Number: A-CH2008-20046

PATIENT
  Age: 74 Year
  Sex: Female

DRUGS (8)
  1. TRACLEER [Suspect]
     Indication: SKIN ULCER
     Dosage: 62.5 MG, BID, ORAL
     Route: 048
     Dates: start: 20080309
  2. URBASON (METHYLPEREDNISOLONE) [Concomitant]
  3. HYDROCHLOROTHIAZIDE [Concomitant]
  4. TRENTAL [Concomitant]
  5. L-THYROXINE (LEVOTHYROXINE) [Concomitant]
  6. AZULDINE (SULFASALAZINE) [Concomitant]
  7. TENORMIN [Concomitant]
  8. ANTIDEPRESSANTS [Concomitant]

REACTIONS (2)
  - PAIN IN EXTREMITY [None]
  - SUPERINFECTION [None]
